FAERS Safety Report 13130701 (Version 1)
Quarter: 2017Q1

REPORT INFORMATION
  Report Type: Spontaneous
  Country: BR (occurrence: BR)
  Receive Date: 20170119
  Receipt Date: 20170119
  Transmission Date: 20170428
  Serious: Yes (Other)
  Sender: FDA-Public Use
  Company Number: BR-PFIZER INC-2017019406

PATIENT
  Age: 63 Year
  Sex: Female
  Weight: 62 kg

DRUGS (2)
  1. CELEBRA [Suspect]
     Active Substance: CELECOXIB
     Indication: SPINAL PAIN
     Dosage: 200 MG, UNK
  2. DOXYCYCLINE. [Concomitant]
     Active Substance: DOXYCYCLINE
     Indication: BLEPHARITIS
     Dosage: 200 MG, UNK
     Route: 048

REACTIONS (5)
  - Diabetes mellitus [Unknown]
  - Hypertension [Unknown]
  - Intervertebral disc protrusion [Unknown]
  - Drug ineffective [Unknown]
  - Haemorrhage [Unknown]

NARRATIVE: CASE EVENT DATE: 2016
